FAERS Safety Report 9030833 (Version 2)
Quarter: 2013Q1

REPORT INFORMATION
  Report Type: Spontaneous
  Country: JP (occurrence: JP)
  Receive Date: 20130123
  Receipt Date: 20130207
  Transmission Date: 20140127
  Serious: Yes (Life-Threatening, Hospitalization)
  Sender: FDA-Public Use
  Company Number: JP-ROCHE-1180803

PATIENT
  Age: 64 Year
  Sex: Male
  Weight: 72 kg

DRUGS (24)
  1. AVASTIN [Suspect]
     Indication: LUNG ADENOCARCINOMA
     Route: 041
     Dates: start: 20120413, end: 20120413
  2. AVASTIN [Suspect]
     Route: 041
     Dates: start: 20120507, end: 20120620
  3. AVASTIN [Suspect]
     Route: 041
     Dates: start: 20120718, end: 20120919
  4. ALIMTA [Suspect]
     Indication: LUNG ADENOCARCINOMA
     Route: 041
     Dates: start: 20120413, end: 20120413
  5. ALIMTA [Suspect]
     Route: 041
     Dates: start: 20120507, end: 20120620
  6. ALIMTA [Suspect]
     Route: 041
     Dates: start: 20120718, end: 20120919
  7. CARBOPLATIN [Suspect]
     Indication: LUNG ADENOCARCINOMA
     Route: 041
     Dates: start: 20120413, end: 20120413
  8. CARBOPLATIN [Suspect]
     Route: 041
     Dates: start: 20120507, end: 20120620
  9. CARBOPLATIN [Suspect]
     Route: 041
     Dates: start: 20120718, end: 20120815
  10. AMARYL [Concomitant]
     Indication: DIABETES MELLITUS
     Route: 048
  11. ACTOS [Concomitant]
     Indication: DIABETES MELLITUS
     Route: 048
  12. MAGLAX [Concomitant]
     Indication: CONSTIPATION
     Route: 048
  13. NU-LOTAN [Concomitant]
     Indication: HYPERTENSION
     Route: 048
  14. PURSENNID [Concomitant]
     Indication: CONSTIPATION
     Route: 048
  15. RESLIN [Concomitant]
     Indication: DEPRESSION
     Route: 048
  16. DOGMATYL [Concomitant]
     Indication: DEPRESSION
     Route: 048
  17. U PAN [Concomitant]
     Indication: DEPRESSION
     Route: 048
  18. EMEND [Concomitant]
     Indication: PROPHYLAXIS OF NAUSEA AND VOMITING
     Dosage: DOSAGE IS UNCERTAIN.
     Route: 048
     Dates: end: 20120817
  19. MEDICON [Concomitant]
     Indication: COUGH
     Route: 048
  20. MUCOSOLVAN L [Concomitant]
     Indication: PRODUCTIVE COUGH
     Route: 048
  21. PANVITAN [Concomitant]
     Route: 048
     Dates: start: 20120407, end: 20121017
  22. METHYCOBAL [Concomitant]
     Route: 030
     Dates: start: 20120407, end: 20120407
  23. METHYCOBAL [Concomitant]
     Route: 030
     Dates: start: 20120629, end: 20120629
  24. METHYCOBAL [Concomitant]
     Route: 030
     Dates: start: 20120905, end: 20120905

REACTIONS (4)
  - Lung disorder [Recovered/Resolved with Sequelae]
  - Neutropenia [Recovering/Resolving]
  - White blood cell count decreased [Recovering/Resolving]
  - Platelet count decreased [Recovering/Resolving]
